FAERS Safety Report 5662812-6 (Version None)
Quarter: 2008Q1

REPORT INFORMATION
  Report Type: 
  Country: None (occurrence: None)
  Receive Date: 20080313
  Receipt Date: 20080229
  Transmission Date: 20080703
  Serious: Yes (Other)
  Sender: FDA-Public Use
  Company Number: FR-AMGEN-US268588

PATIENT
  Sex: Female

DRUGS (3)
  1. ENBREL [Suspect]
     Indication: SPONDYLOARTHROPATHY
     Route: 058
     Dates: start: 20071102, end: 20071123
  2. NOVATREX [Concomitant]
     Indication: SPONDYLOARTHROPATHY
     Dosage: 8 TABLETS TOTAL WEEKLY
     Route: 065
  3. CORTANCYL [Concomitant]
     Dosage: 8 MG TOTAL DAILY
     Route: 065

REACTIONS (2)
  - PAIN [None]
  - RASH ERYTHEMATOUS [None]
